FAERS Safety Report 6895008-0 (Version None)
Quarter: 2010Q3

REPORT INFORMATION
  Report Type: 
  Country: None (occurrence: None)
  Receive Date: 20100802
  Receipt Date: 20100727
  Transmission Date: 20110219
  Serious: Yes (Other)
  Sender: FDA-Public Use
  Company Number: DE-ROCHE-717653

PATIENT
  Sex: Male
  Weight: 66 kg

DRUGS (4)
  1. PEGINTERFERON ALFA-2A [Suspect]
     Indication: HEPATITIS C
     Dosage: DAILY DOSE: 25.7143 MCG
     Route: 058
     Dates: start: 20090414, end: 20090509
  2. RIBAVIRIN [Suspect]
     Indication: HEPATITIS C
     Dosage: DAILY DOSE: 1000 MG
     Route: 048
     Dates: start: 20090414, end: 20090515
  3. BI 201335 NA [Suspect]
     Indication: HEPATITIS C
     Dosage: DAILY DOSE: 240 MG (120 MG). DOSE UNBLINDED.
     Route: 048
     Dates: start: 20090414, end: 20090515
  4. PARACETAMOL [Concomitant]
     Dosage: DOSE: 500-1000 MG (500 MG)
     Route: 048
     Dates: start: 20090414, end: 20090511

REACTIONS (1)
  - PALMAR-PLANTAR ERYTHRODYSAESTHESIA SYNDROME [None]
